FAERS Safety Report 10219675 (Version 2)
Quarter: 2014Q2

REPORT INFORMATION
  Report Type: Spontaneous
  Country: US (occurrence: US)
  Receive Date: 20140605
  Receipt Date: 20140623
  Transmission Date: 20141212
  Serious: Yes (Death)
  Sender: FDA-Public Use
  Company Number: US-B.I. PHARMACEUTICALS,INC./RIDGEFIELD-2014-BI-25065BP

PATIENT
  Sex: Male

DRUGS (1)
  1. PRADAXA [Suspect]
     Indication: PRODUCT USED FOR UNKNOWN INDICATION
     Route: 048
     Dates: start: 2012

REACTIONS (2)
  - Haemorrhage [Fatal]
  - Myocardial infarction [Fatal]
